FAERS Safety Report 7207023-8 (Version None)
Quarter: 2011Q1

REPORT INFORMATION
  Report Type: 
  Country: None (occurrence: None)
  Receive Date: 20110103
  Receipt Date: 20101223
  Transmission Date: 20110831
  Serious: Yes (Other)
  Sender: FDA-Public Use
  Company Number: B0680758A

PATIENT

DRUGS (4)
  1. EPIRUBICIN [Suspect]
     Indication: BREAST CANCER
  2. CYCLOPHOSPHAMIDE [Suspect]
     Indication: BREAST CANCER
  3. FLUOROURACIL [Suspect]
     Indication: BREAST CANCER
  4. LAPATINIB [Suspect]
     Indication: BREAST CANCER
     Dosage: 1500MG PER DAY
     Route: 048

REACTIONS (1)
  - NEUTROPENIA [None]
